FAERS Safety Report 25416310 (Version 1)
Quarter: 2025Q2

REPORT INFORMATION
  Report Type: Spontaneous
  Country: SE (occurrence: SE)
  Receive Date: 20250610
  Receipt Date: 20250610
  Transmission Date: 20250717
  Serious: Yes (Disabling)
  Sender: ACCORD
  Company Number: None

PATIENT
  Age: 60 Year
  Sex: Male

DRUGS (18)
  1. SERTRALINE [Suspect]
     Active Substance: SERTRALINE HYDROCHLORIDE
     Indication: Product used for unknown indication
     Dates: start: 2021, end: 2024
  2. ASPIRIN [Concomitant]
     Active Substance: ASPIRIN
  3. ALFUZOSIN [Concomitant]
     Active Substance: ALFUZOSIN
  4. LINAGLIPTIN [Concomitant]
     Active Substance: LINAGLIPTIN
  5. COLESTIPOL [Concomitant]
     Active Substance: COLESTIPOL
  6. OMEPRAZOLE [Concomitant]
     Active Substance: OMEPRAZOLE
  7. EZETIMIBE [Concomitant]
     Active Substance: EZETIMIBE
  8. VEDOLIZUMAB [Concomitant]
     Active Substance: VEDOLIZUMAB
  9. RAMIPRIL [Concomitant]
     Active Substance: RAMIPRIL
  10. ALLOPURINOL [Concomitant]
     Active Substance: ALLOPURINOL
  11. IMDUR [Concomitant]
     Active Substance: ISOSORBIDE MONONITRATE
  12. METHOTREXATE [Concomitant]
     Active Substance: METHOTREXATE
  13. ATORVASTATIN [Concomitant]
     Active Substance: ATORVASTATIN
  14. FERROUS SULFATE [Concomitant]
     Active Substance: FERROUS SULFATE
  15. EMPAGLIFLOZIN [Concomitant]
     Active Substance: EMPAGLIFLOZIN
  16. HYDROXOCOBALAMIN [Concomitant]
     Active Substance: HYDROXOCOBALAMIN
  17. FOLIC ACID [Concomitant]
     Active Substance: FOLIC ACID
  18. BISOPROLOL [Concomitant]
     Active Substance: BISOPROLOL

REACTIONS (4)
  - Dysphagia [Unknown]
  - Wheelchair user [Not Recovered/Not Resolved]
  - Multiple acyl-coenzyme A dehydrogenase deficiency [Unknown]
  - Muscular weakness [Not Recovered/Not Resolved]

NARRATIVE: CASE EVENT DATE: 20220101
